FAERS Safety Report 9750087 (Version 1)
Quarter: 2013Q4

REPORT INFORMATION
  Report Type: Spontaneous
  Country: US (occurrence: US)
  Receive Date: 20131212
  Receipt Date: 20131212
  Transmission Date: 20140711
  Serious: No
  Sender: FDA-Public Use
  Company Number: US-GILEAD-US-CVT-090827

PATIENT
  Age: 74 Year
  Sex: Female

DRUGS (2)
  1. RANEXA [Suspect]
     Indication: ANGINA PECTORIS
     Route: 048
     Dates: start: 20091216
  2. ALTACE [Concomitant]
     Indication: BLOOD PRESSURE
     Dates: end: 20091216

REACTIONS (2)
  - Hypertension [Unknown]
  - Feeling abnormal [Unknown]
